FAERS Safety Report 6339074-X (Version None)
Quarter: 2009Q3

REPORT INFORMATION
  Report Type: 
  Country: None (occurrence: None)
  Receive Date: 20090903
  Receipt Date: 20090825
  Transmission Date: 20100115
  Serious: Yes (Disabling)
  Sender: FDA-Public Use
  Company Number: GB-ROCHE-653136

PATIENT
  Age: 60 Year
  Sex: Male

DRUGS (5)
  1. TAMIFLU [Suspect]
     Indication: DRUG USE FOR UNKNOWN INDICATION
     Route: 065
     Dates: start: 20090717, end: 20090722
  2. ASPIRIN [Concomitant]
     Route: 048
  3. ATENOLOL [Concomitant]
     Route: 048
     Dates: start: 20090805
  4. DILTIAZEM HCL [Concomitant]
     Dosage: DRUG NAME:TILDIEM LA
     Route: 048
     Dates: start: 20051230
  5. SIMVASTATIN [Concomitant]
     Route: 048
     Dates: start: 20040319, end: 20090805

REACTIONS (3)
  - CHEST PAIN [None]
  - LIVER FUNCTION TEST ABNORMAL [None]
  - RASH [None]
